FAERS Safety Report 9419928 (Version 1)
Quarter: 2013Q3

REPORT INFORMATION
  Report Type: Spontaneous
  Country: US (occurrence: None)
  Receive Date: 20130723
  Receipt Date: 20130723
  Transmission Date: 20140515
  Serious: Yes (Other)
  Sender: FDA-Public Use
  Company Number: None

PATIENT
  Age: 53 Year
  Sex: Female
  Weight: 65.77 kg

DRUGS (2)
  1. ZOLPIDEM [Suspect]
     Indication: MENOPAUSE
     Dosage: 12.5 MGS AT NIGHT  PRN-3-4X^S PER WK- PO
     Dates: start: 20110110, end: 20130317
  2. ZOLPIDEM [Suspect]
     Indication: INSOMNIA
     Dosage: 12.5 MGS AT NIGHT  PRN-3-4X^S PER WK- PO
     Dates: start: 20110110, end: 20130317

REACTIONS (1)
  - Drug ineffective [None]
